FAERS Safety Report 7322504-4 (Version None)
Quarter: 2011Q1

REPORT INFORMATION
  Report Type: 
  Country: None (occurrence: None)
  Receive Date: 20110301
  Receipt Date: 20100813
  Transmission Date: 20110831
  Serious: Yes (Other)
  Sender: FDA-Public Use
  Company Number: US-BAYER-201021950NA

PATIENT
  Sex: Female
  Weight: 73 kg

DRUGS (11)
  1. ALBUTEROL [Concomitant]
  2. YAZ [Suspect]
     Indication: CONTRACEPTION
     Dosage: UNK UNK, QD
     Route: 048
     Dates: start: 20090101, end: 20090501
  3. OCELLA [Suspect]
     Indication: CONTRACEPTION
     Dosage: UNK UNK, QD
     Route: 048
     Dates: start: 20090101, end: 20090101
  4. CLARITIN [Concomitant]
  5. ZANTAC [Concomitant]
  6. YASMIN [Suspect]
     Dosage: UNK
     Dates: start: 20090512
  7. CHERATUSSIN AC [Concomitant]
  8. RANITIDINE HCL [Concomitant]
  9. YASMIN [Suspect]
     Indication: CONTRACEPTION
     Dosage: UNK
     Route: 048
     Dates: start: 20060101
  10. LORATADINE [Concomitant]
  11. YASMIN [Suspect]
     Dosage: UNK
     Route: 048
     Dates: start: 20080901, end: 20090101

REACTIONS (2)
  - CHOLECYSTITIS CHRONIC [None]
  - CHOLELITHIASIS [None]
